FAERS Safety Report 9422780 (Version 1)
Quarter: 2013Q3

REPORT INFORMATION
  Report Type: Spontaneous
  Country: GB (occurrence: GB)
  Receive Date: 20130726
  Receipt Date: 20130726
  Transmission Date: 20140515
  Serious: Yes (Disabling)
  Sender: FDA-Public Use
  Company Number: GB-JNJFOC-20130713567

PATIENT
  Age: 69 Year
  Sex: Female
  Weight: 50.8 kg

DRUGS (3)
  1. XARELTO [Suspect]
     Indication: PRODUCT USED FOR UNKNOWN INDICATION
     Route: 048
     Dates: start: 20130612
  2. WARFARIN SODIUM [Concomitant]
     Route: 065
     Dates: start: 20130503, end: 20130531
  3. BISOPROLOL [Concomitant]
     Route: 065
     Dates: start: 20130415, end: 20130513

REACTIONS (2)
  - Asthenia [Recovered/Resolved]
  - Sedation [Recovered/Resolved]
